FAERS Safety Report 22086902 (Version 2)
Quarter: 2023Q2

REPORT INFORMATION
  Report Type: Spontaneous
  Country: FR (occurrence: FR)
  Receive Date: 20230312
  Receipt Date: 20230621
  Transmission Date: 20230722
  Serious: Yes (Hospitalization)
  Sender: FDA-Public Use
  Company Number: None

PATIENT
  Age: 5 Year
  Sex: Male
  Weight: 21 kg

DRUGS (7)
  1. NORVIR [Suspect]
     Active Substance: RITONAVIR
     Indication: Congenital HIV infection
     Dosage: 100MG/JR
     Route: 048
     Dates: start: 202204
  2. NORVIR [Suspect]
     Active Substance: RITONAVIR
     Indication: Congenital HIV infection
     Dosage: 100MG/JR
     Route: 048
     Dates: start: 202204
  3. EPIVIR [Suspect]
     Active Substance: LAMIVUDINE
     Indication: Congenital HIV infection
     Dosage: 9.5ML 2/JR
     Route: 048
     Dates: start: 202204
  4. EPIVIR [Suspect]
     Active Substance: LAMIVUDINE
     Indication: Congenital HIV infection
     Dosage: 9.5ML 2/JR
     Route: 048
     Dates: start: 202204
  5. ZIAGEN [Suspect]
     Active Substance: ABACAVIR SULFATE
     Indication: Congenital HIV infection
     Dosage: 8ML 2/JR
     Route: 048
     Dates: start: 202204
  6. ZIAGEN [Suspect]
     Active Substance: ABACAVIR SULFATE
     Indication: Congenital HIV infection
     Dosage: 8ML 2/JR
     Route: 048
     Dates: start: 202204
  7. PREZISTA [Suspect]
     Active Substance: DARUNAVIR ETHANOLATE
     Indication: Congenital HIV infection
     Route: 048
     Dates: start: 202204, end: 20230113

REACTIONS (1)
  - Eosinophilia [Recovering/Resolving]

NARRATIVE: CASE EVENT DATE: 20220914
